FAERS Safety Report 13717855 (Version 1)
Quarter: 2017Q3

REPORT INFORMATION
  Report Type: Spontaneous
  Country: CD (occurrence: CD)
  Receive Date: 20170705
  Receipt Date: 20170705
  Transmission Date: 20171127
  Serious: Yes (Hospitalization)
  Sender: FDA-Public Use
  Company Number: PHHY2017CD096837

PATIENT
  Age: 5 Year
  Sex: Male

DRUGS (1)
  1. COARTEM [Suspect]
     Active Substance: ARTEMETHER\LUMEFANTRINE
     Indication: MALARIA
     Dosage: 20 MG ARTEMISININ, 120 MG LUMEFANTRINE
     Route: 065

REACTIONS (7)
  - Drug resistance [Unknown]
  - Pyrexia [Recovered/Resolved]
  - Treatment failure [Unknown]
  - Coma [Recovered/Resolved]
  - Anaemia [Recovered/Resolved]
  - Seizure [Recovered/Resolved]
  - Respiratory tract infection [Recovered/Resolved]
